FAERS Safety Report 5474639-9 (Version None)
Quarter: 2007Q3

REPORT INFORMATION
  Report Type: 
  Country: None (occurrence: None)
  Receive Date: 20070831
  Receipt Date: 20070402
  Transmission Date: 20080115
  Serious: Yes (Life-Threatening)
  Sender: FDA-Public Use
  Company Number: 262422

PATIENT
  Age: 80 Year
  Sex: Female

DRUGS (13)
  1. NOVOLIN 70/30 [Suspect]
     Indication: INSULIN-REQUIRING TYPE II DIABETES MELLITUS
     Dosage: SLIDING SCALE, SUBCUTANEOUS
     Route: 058
     Dates: start: 20050101
  2. FUROSEMIDE [Concomitant]
  3. SIMVASTATIN [Concomitant]
  4. GEMFIBROZIL [Concomitant]
  5. TOPROL-XL [Concomitant]
  6. ENTERIC ASPIRIN (ACETYLSALICYLIC ACID) [Concomitant]
  7. LEVOXYL [Concomitant]
  8. CLARITIN [Concomitant]
  9. CENTRUM (MINERALS NOS, VITAMINS NOS) [Concomitant]
  10. OSCAL (CALCIUM CARBONATE) [Concomitant]
  11. B COMPLEX (NICOTINAMIDE, PYRIDOXINE HYDROCHLORIDE, RIBOFLAVIN, THIAMIN [Concomitant]
  12. OCUVITE (ASCORBIC ACID, RETINOL, TOCOPHEROL) [Concomitant]
  13. VITAMIN E [Concomitant]

REACTIONS (2)
  - BLOOD GLUCOSE DECREASED [None]
  - HYPOGLYCAEMIC UNCONSCIOUSNESS [None]
